FAERS Safety Report 4612363-2 (Version None)
Quarter: 2005Q1

REPORT INFORMATION
  Report Type: 
  Country: None (occurrence: None)
  Receive Date: 20050308
  Receipt Date: 20041118
  Transmission Date: 20050727
  Serious: Yes (Other)
  Sender: FDA-Public Use
  Company Number: 2004UW23700

PATIENT
  Age: 70 Year
  Sex: Female
  Weight: 61.234 kg

DRUGS (2)
  1. CRESTOR [Suspect]
     Indication: BLOOD CHOLESTEROL INCREASED
     Dosage: 5 MG HS PO
     Route: 048
  2. FOSAMAX [Concomitant]

REACTIONS (2)
  - BURNING SENSATION [None]
  - PAIN [None]
